FAERS Safety Report 16373438 (Version 1)
Quarter: 2019Q2

REPORT INFORMATION
  Report Type: Spontaneous
  Country: FR (occurrence: FR)
  Receive Date: 20190530
  Receipt Date: 20190530
  Transmission Date: 20190711
  Serious: Yes (Other)
  Sender: FDA-Public Use
  Company Number: FR-CELGENEUS-FRA-20190509074

PATIENT
  Age: 65 Year
  Sex: Male
  Weight: 85 kg

DRUGS (1)
  1. OTEZLA [Suspect]
     Active Substance: APREMILAST
     Indication: PSORIASIS
     Dosage: 60 MILLIGRAM
     Route: 048
     Dates: start: 20181215, end: 20190210

REACTIONS (2)
  - Suicidal ideation [Recovered/Resolved]
  - Irritability [Recovered/Resolved]

NARRATIVE: CASE EVENT DATE: 20181218
